FAERS Safety Report 17261573 (Version 1)
Quarter: 2020Q1

REPORT INFORMATION
  Report Type: Spontaneous
  Country: FR (occurrence: FR)
  Receive Date: 20200113
  Receipt Date: 20200113
  Transmission Date: 20200409
  Serious: Yes (Hospitalization)
  Sender: FDA-Public Use
  Company Number: FR-TEVA-2020-FR-1166897

PATIENT
  Age: 84 Year
  Sex: Male
  Weight: 88 kg

DRUGS (15)
  1. VINCRISTINE (SULFATE DE) [Suspect]
     Active Substance: VINCRISTINE SULFATE
     Indication: CENTRAL NERVOUS SYSTEM LYMPHOMA
     Dosage: 2 MG PER 1 CYCLICAL
     Route: 042
     Dates: start: 20191030
  2. CLOPIDOGREL (CHLORHYDRATE DE) [Concomitant]
     Active Substance: CLOPIDOGREL HYDROCHLORIDE
     Route: 048
  3. TANAKAN [Concomitant]
     Active Substance: GINKGO
     Route: 048
  4. PERMIXON 160 MG, GELULE [Concomitant]
     Active Substance: HERBALS\SAW PALMETTO
     Route: 048
  5. ESOMEPRAZOLE. [Concomitant]
     Active Substance: ESOMEPRAZOLE MAGNESIUM
     Route: 048
  6. METHOTREXATE. [Suspect]
     Active Substance: METHOTREXATE
     Indication: CENTRAL NERVOUS SYSTEM LYMPHOMA
     Dosage: 2000 MG PER 1 CYCLICAL
     Route: 042
     Dates: start: 20191031
  7. SKENAN [Suspect]
     Active Substance: MORPHINE SULFATE
     Indication: PRODUCT USED FOR UNKNOWN INDICATION
     Dosage: 2 DOSAGE FORMS PER DAY
     Route: 048
     Dates: start: 20191112, end: 20191118
  8. RITUXIMAB ((MAMMIFERE/HAMSTER/CELLULES CHO)) [Suspect]
     Active Substance: RITUXIMAB
     Indication: CENTRAL NERVOUS SYSTEM LYMPHOMA
     Dosage: 750 MG PER 1 CYCLICAL
     Route: 042
     Dates: start: 20191029
  9. PARACETAMOL [Concomitant]
     Active Substance: ACETAMINOPHEN
     Route: 048
  10. IKERVIS 1 MG/ML, COLLYRE EN EMULSION EN RECIPIENT UNIDOSE [Concomitant]
     Route: 047
  11. ISOPTINE [Concomitant]
     Active Substance: VERAPAMIL HYDROCHLORIDE
     Route: 048
  12. LAMICTAL [Concomitant]
     Active Substance: LAMOTRIGINE
     Route: 048
  13. PROCARBAZINE [Suspect]
     Active Substance: PROCARBAZINE
     Indication: CENTRAL NERVOUS SYSTEM LYMPHOMA
     Dosage: 200 MG PER 1 CYCLICAL
     Route: 042
     Dates: start: 20191029
  14. VISMED [Concomitant]
     Active Substance: HYALURONATE SODIUM
     Route: 047
  15. APROVEL 150 MG, COMPRIME [Concomitant]
     Active Substance: IRBESARTAN
     Route: 048

REACTIONS (1)
  - Leukoencephalopathy [Not Recovered/Not Resolved]

NARRATIVE: CASE EVENT DATE: 20191118
